FAERS Safety Report 21420049 (Version 1)
Quarter: 2022Q4

REPORT INFORMATION
  Report Type: Spontaneous
  Country: PL (occurrence: PL)
  Receive Date: 20221007
  Receipt Date: 20221007
  Transmission Date: 20230112
  Serious: Yes (Hospitalization, Other)
  Sender: FDA-Public Use
  Company Number: PL-SUN PHARMACEUTICAL INDUSTRIES LTD-2022R1-357532

PATIENT
  Age: 32 Year
  Sex: Female

DRUGS (3)
  1. ASPIRIN [Suspect]
     Active Substance: ASPIRIN
     Indication: Inferior vena cava stenosis
     Dosage: UNK (75 MG)
     Route: 065
  2. UNSPECIFIED INGREDIENT [Suspect]
     Active Substance: UNSPECIFIED INGREDIENT
     Indication: Thrombosis prophylaxis
     Dosage: UNK (40 MG)
     Route: 065
  3. UNSPECIFIED INGREDIENT [Suspect]
     Active Substance: UNSPECIFIED INGREDIENT
     Dosage: UNK (80 MG)
     Route: 065

REACTIONS (4)
  - Exposure during pregnancy [Unknown]
  - Activated partial thromboplastin time shortened [Unknown]
  - Cholestasis of pregnancy [Unknown]
  - Live birth [Unknown]
